FAERS Safety Report 26134998 (Version 1)
Quarter: 2025Q4

REPORT INFORMATION
  Report Type: Spontaneous
  Country: JP (occurrence: None)
  Receive Date: 20251209
  Receipt Date: 20251209
  Transmission Date: 20260118
  Serious: Yes (Other)
  Sender: ENDO
  Company Number: JP-ENDO USA, INC.-2025-002390

PATIENT
  Age: 26 Year
  Sex: Female

DRUGS (3)
  1. AMOXICILLIN [Suspect]
     Active Substance: AMOXICILLIN
     Indication: Pulpitis dental
     Dosage: UNK UNKNOWN, UNKNOWN
  2. AMOXICILLIN [Suspect]
     Active Substance: AMOXICILLIN
     Indication: Dental caries
  3. SECUKINUMAB [Concomitant]
     Active Substance: SECUKINUMAB
     Indication: Deficiency of the interleukin-36 receptor antagonist
     Dosage: UNK UNKNOWN, MONTHLY

REACTIONS (1)
  - Generalised pustular psoriasis [Recovered/Resolved]
